FAERS Safety Report 16395378 (Version 6)
Quarter: 2023Q2

REPORT INFORMATION
  Report Type: Spontaneous
  Country: HU (occurrence: HU)
  Receive Date: 20190605
  Receipt Date: 20230522
  Transmission Date: 20230721
  Serious: Yes (Hospitalization)
  Sender: FDA-Public Use
  Company Number: PHHY2019HU126017

PATIENT
  Age: 24 Year
  Sex: Female

DRUGS (5)
  1. ADALIMUMAB [Suspect]
     Active Substance: ADALIMUMAB
     Indication: Crohn^s disease
     Dosage: UNK (IN THE LAST YEAR)
     Route: 065
  2. AZATHIOPRINE [Suspect]
     Active Substance: AZATHIOPRINE
     Indication: Crohn^s disease
     Dosage: UNK (FOR MORE THAN 3 YEARS)
     Route: 065
  3. CIPROFLOXACIN [Suspect]
     Active Substance: CIPROFLOXACIN
     Indication: Product used for unknown indication
     Dosage: 1 TABLET (HER OWN, JUST BEFORE ADMISSION)
     Route: 065
  4. ACETAMINOPHEN [Suspect]
     Active Substance: ACETAMINOPHEN
     Indication: Product used for unknown indication
     Dosage: UNK (HER OWN, JUST BEFORE ADMISSION)
     Route: 065
  5. METAMIZOLE [Suspect]
     Active Substance: METAMIZOLE
     Indication: Product used for unknown indication
     Dosage: UNK (HER OWN, JUST BEFORE ADMISSION)
     Route: 065

REACTIONS (2)
  - Acute hepatic failure [Not Recovered/Not Resolved]
  - Toxicity to various agents [Unknown]
